FAERS Safety Report 7645430-X (Version None)
Quarter: 2011Q3

REPORT INFORMATION
  Report Type: 
  Country: None (occurrence: None)
  Receive Date: 20110729
  Receipt Date: 20110726
  Transmission Date: 20111222
  Serious: Yes (Hospitalization)
  Sender: FDA-Public Use
  Company Number: CHPA2011US09870

PATIENT
  Age: 78 Year
  Sex: Female

DRUGS (3)
  1. DRUG THERAPY NOS [Concomitant]
  2. BENEFIBER W/ WHEAT DEXTRIN [Suspect]
     Indication: SUPPLEMENTATION THERAPY
     Dosage: 2 HEAPING TABLESPOONS, BID
     Route: 048
  3. BENEFIBER W/ WHEAT DEXTRIN [Suspect]
     Indication: CONSTIPATION
     Dosage: UNK, SPORADICALLY
     Route: 048

REACTIONS (4)
  - OVERDOSE [None]
  - HIP ARTHROPLASTY [None]
  - THERAPEUTIC RESPONSE UNEXPECTED [None]
  - OFF LABEL USE [None]
